FAERS Safety Report 9912997 (Version 1)
Quarter: 2014Q1

REPORT INFORMATION
  Report Type: Spontaneous
  Country: US (occurrence: None)
  Receive Date: 20140218
  Receipt Date: 20140218
  Transmission Date: 20141002
  Serious: Yes (Life-Threatening, Hospitalization)
  Sender: FDA-Public Use
  Company Number: None

PATIENT
  Age: 38 Year
  Sex: Female
  Weight: 67.59 kg

DRUGS (1)
  1. CHLORAPREP [Suspect]
     Indication: PREOPERATIVE CARE
     Dates: start: 20131016, end: 20140110

REACTIONS (10)
  - Skin irritation [None]
  - Pruritus [None]
  - Erythema [None]
  - Scab [None]
  - Wound drainage [None]
  - Drug hypersensitivity [None]
  - Skin disorder [None]
  - Staphylococcal infection [None]
  - Skin discolouration [None]
  - Catheter site related reaction [None]
